FAERS Safety Report 15137884 (Version 1)
Quarter: 2018Q3

REPORT INFORMATION
  Report Type: Spontaneous
  Country: IN (occurrence: IN)
  Receive Date: 20180712
  Receipt Date: 20180712
  Transmission Date: 20181010
  Serious: Yes (Hospitalization, Other)
  Sender: FDA-Public Use
  Company Number: IN-ELI_LILLY_AND_COMPANY-IN201807001713

PATIENT
  Age: 8 Year
  Sex: Male

DRUGS (1)
  1. OLANZAPINE. [Suspect]
     Active Substance: OLANZAPINE
     Indication: PRODUCT USED FOR UNKNOWN INDICATION
     Dosage: 15 MG, UNKNOWN
     Route: 048

REACTIONS (6)
  - Accidental overdose [Unknown]
  - Coma scale abnormal [Recovering/Resolving]
  - Toxicity to various agents [Unknown]
  - Miosis [Unknown]
  - Somnolence [Recovering/Resolving]
  - Accidental exposure to product by child [Unknown]
